FAERS Safety Report 7219791-X (Version None)
Quarter: 2011Q1

REPORT INFORMATION
  Report Type: 
  Country: None (occurrence: None)
  Receive Date: 20110111
  Receipt Date: 20110106
  Transmission Date: 20110831
  Serious: Yes (Life-Threatening, Hospitalization)
  Sender: FDA-Public Use
  Company Number: JP-NOVOPROD-320600

PATIENT
  Age: 35 Year
  Sex: Female
  Weight: 115 kg

DRUGS (7)
  1. NOVOLIN R [Suspect]
     Indication: SUICIDE ATTEMPT
     Dosage: 1200 U, QD
     Route: 058
     Dates: start: 20100914, end: 20100914
  2. AMLODIPINE [Concomitant]
     Route: 048
  3. SEIBULE [Concomitant]
     Route: 048
  4. LEVEMIR [Suspect]
     Indication: SUICIDE ATTEMPT
     Dosage: 900 U, QD
     Route: 058
     Dates: start: 20100914, end: 20100914
  5. NITROPEN [Concomitant]
     Route: 048
  6. RIVOTRIL [Concomitant]
     Route: 048
  7. TANATRIL [Concomitant]
     Route: 048

REACTIONS (3)
  - SUICIDE ATTEMPT [None]
  - HYPOGLYCAEMIC COMA [None]
  - INTENTIONAL OVERDOSE [None]
